FAERS Safety Report 7704862-1 (Version None)
Quarter: 2011Q3

REPORT INFORMATION
  Report Type: 
  Country: None (occurrence: None)
  Receive Date: 20110823
  Receipt Date: 20110812
  Transmission Date: 20111222
  Serious: Yes (Hospitalization, Other)
  Sender: FDA-Public Use
  Company Number: US-SANOFI-AVENTIS-2011SA038769

PATIENT
  Age: 72 Year
  Sex: Female
  Weight: 78 kg

DRUGS (27)
  1. SOLOSTAR [Suspect]
  2. FISH OIL [Concomitant]
     Dosage: 2 DAILY
  3. OXYGEN [Concomitant]
     Dosage: 0.2 24/7
  4. LANTUS [Suspect]
     Dosage: DOSE:20 UNIT(S)
     Route: 058
  5. ISOSORBIDE DINITRATE [Concomitant]
  6. AMLODIPINE [Concomitant]
  7. ALL OTHER THERAPEUTIC PRODUCTS [Concomitant]
  8. ALBUTEROL SULFATE [Concomitant]
  9. ASPIRIN [Concomitant]
  10. EFFEXOR [Concomitant]
  11. ADVAIR DISKUS 100/50 [Concomitant]
     Indication: RESPIRATORY DISORDER
     Dosage: 250/50 2 TIMES A DAY
  12. MICROZIDE [Concomitant]
  13. NEURONTIN [Concomitant]
     Dosage: 1-3 TIMES PER DAY
  14. PRILOSEC [Concomitant]
  15. REMICADE [Concomitant]
     Dosage: EVERY OTHER MONTH
  16. NITROGLYCERIN [Concomitant]
     Dosage: 0.4 1 EVERY 5 MIN, 3 TIMES FOR ONSET OF CHEST PAIN
  17. SYNTHROID [Concomitant]
  18. LUTEIN [Concomitant]
  19. VENTOLIN [Concomitant]
     Dosage: 2 PUFFS DAILY
  20. LANTUS [Suspect]
     Dosage: DOSE:20 UNIT(S)
     Route: 058
  21. ATIVAN [Concomitant]
     Indication: NERVOUSNESS
  22. VICODIN [Concomitant]
     Indication: PAIN
     Dosage: 2 FOR PAIN AS NEEDED
  23. TIOTROPIUM BROMIDE [Concomitant]
     Indication: RESPIRATORY DISORDER
  24. XOPENEX [Concomitant]
     Dosage: 2 PUFFS DAILY
  25. SOLOSTAR [Suspect]
  26. VITAMIN B-12 [Concomitant]
  27. GLUCOPHAGE [Concomitant]

REACTIONS (9)
  - ULCER [None]
  - FALL [None]
  - BRONCHITIS [None]
  - VISION BLURRED [None]
  - NERVOUSNESS [None]
  - VISUAL IMPAIRMENT [None]
  - HAND FRACTURE [None]
  - UNEVALUABLE EVENT [None]
  - PNEUMONIA [None]
